FAERS Safety Report 15188677 (Version 3)
Quarter: 2018Q3

REPORT INFORMATION
  Report Type: Spontaneous
  Country: US (occurrence: US)
  Receive Date: 20180724
  Receipt Date: 20180926
  Transmission Date: 20181010
  Serious: No
  Sender: FDA-Public Use
  Company Number: US-PFIZER INC-2018295238

PATIENT
  Age: 84 Year
  Sex: Female
  Weight: 54.42 kg

DRUGS (5)
  1. LEVOTHYROXINE. [Concomitant]
     Active Substance: LEVOTHYROXINE
     Dosage: UNK
  2. AMITRIPTYLINE [Concomitant]
     Active Substance: AMITRIPTYLINE
     Indication: POOR QUALITY SLEEP
     Dosage: 10 MG, 1X/DAY (ONCE A NIGHT)
  3. LATANOPROST. [Suspect]
     Active Substance: LATANOPROST
     Indication: GLAUCOMA
     Dosage: 2 GTT, 1X/DAY (ONCE A NIGHT IN EACH EYE AT BEDTIME, ONE DROP)
  4. LATANOPROST. [Suspect]
     Active Substance: LATANOPROST
     Dosage: UNK
  5. OCUVITE [Concomitant]
     Active Substance: VITAMINS
     Dosage: UNK

REACTIONS (3)
  - Rash [Not Recovered/Not Resolved]
  - Pruritus [Not Recovered/Not Resolved]
  - Drug ineffective [Unknown]
